FAERS Safety Report 5489226-6 (Version None)
Quarter: 2007Q4

REPORT INFORMATION
  Report Type: 
  Country: None (occurrence: None)
  Receive Date: 20071016
  Receipt Date: 20071002
  Transmission Date: 20080405
  Serious: Yes (Hospitalization)
  Sender: FDA-Public Use
  Company Number: SPV1-2007-04424

PATIENT
  Age: 16 Year
  Sex: Male

DRUGS (1)
  1. ELAPRASE [Suspect]
     Indication: MUCOPOLYSACCHARIDOSIS II
     Dosage: 0.5 MG/KG, 1X/2WKS, IV DRIP
     Route: 041
     Dates: start: 20011004

REACTIONS (4)
  - CARDIAC VALVE DISEASE [None]
  - DYSPNOEA [None]
  - POST PROCEDURAL COMPLICATION [None]
  - RESPIRATORY DISTRESS [None]
